FAERS Safety Report 5850881-X (Version None)
Quarter: 2008Q3

REPORT INFORMATION
  Report Type: 
  Country: None (occurrence: None)
  Receive Date: 20080820
  Receipt Date: 20080805
  Transmission Date: 20090109
  Serious: Yes (Other)
  Sender: FDA-Public Use
  Company Number: US-BAYER-200828810NA

PATIENT
  Age: 35 Year
  Sex: Female
  Weight: 77 kg

DRUGS (4)
  1. MIRENA [Suspect]
     Indication: CONTRACEPTION
     Route: 015
     Dates: start: 20080623, end: 20080724
  2. ACTOS + MET [Concomitant]
     Indication: DRUG USE FOR UNKNOWN INDICATION
  3. AMARYL [Concomitant]
     Indication: DRUG USE FOR UNKNOWN INDICATION
  4. SLIDING SCALE HUMULIN R [Concomitant]
     Indication: DRUG USE FOR UNKNOWN INDICATION

REACTIONS (3)
  - BLOOD GLUCOSE INCREASED [None]
  - GENITAL HAEMORRHAGE [None]
  - HYPERGLYCAEMIA [None]
